FAERS Safety Report 15497476 (Version 1)
Quarter: 2018Q4

REPORT INFORMATION
  Report Type: Spontaneous
  Country: US (occurrence: US)
  Receive Date: 20181015
  Receipt Date: 20181015
  Transmission Date: 20190205
  Serious: No
  Sender: FDA-Public Use
  Company Number: US-AUROBINDO-AUR-APU-2018-046197

PATIENT
  Sex: Male

DRUGS (1)
  1. LORAZEPAM TABLETS USP 1 MG [Suspect]
     Active Substance: LORAZEPAM
     Indication: TINNITUS
     Dosage: 1 DOSAGE FORM, DAILY
     Route: 065
     Dates: start: 20180822, end: 20180910

REACTIONS (4)
  - Insomnia [Unknown]
  - Hyperhidrosis [Unknown]
  - Product use in unapproved indication [Unknown]
  - Nightmare [Unknown]

NARRATIVE: CASE EVENT DATE: 20180822
